FAERS Safety Report 4654636-3 (Version None)
Quarter: 2005Q2

REPORT INFORMATION
  Report Type: 
  Country: None (occurrence: None)
  Receive Date: 20050504
  Receipt Date: 20050504
  Transmission Date: 20051028
  Serious: Yes (Other)
  Sender: FDA-Public Use
  Company Number: None

PATIENT
  Age: 73 Year
  Sex: Female
  Weight: 67.9 kg

DRUGS (2)
  1. AMITRIPTYLINE HCL [Suspect]
     Indication: BIPOLAR DISORDER
     Dosage: 50MG  HS   ORAL
     Route: 048
  2. THIORIDAZINE   75MG [Suspect]
     Indication: BIPOLAR DISORDER
     Dosage: 75MG   DAILY  ORAL
     Route: 048

REACTIONS (3)
  - ELECTROCARDIOGRAM QT PROLONGED [None]
  - MANIA [None]
  - SYNCOPE [None]
